FAERS Safety Report 10271324 (Version 2)
Quarter: 2014Q3

REPORT INFORMATION
  Report Type: Spontaneous
  Country: US (occurrence: US)
  Receive Date: 20140701
  Receipt Date: 20140717
  Transmission Date: 20150326
  Serious: Yes (Other)
  Sender: FDA-Public Use
  Company Number: US-PFIZER INC-2014176934

PATIENT
  Age: 67 Year
  Sex: Female
  Weight: 76.64 kg

DRUGS (4)
  1. FOSAMAX [Concomitant]
     Active Substance: ALENDRONATE SODIUM
     Indication: OSTEOPENIA
     Dosage: UNK
  2. VYTORIN [Concomitant]
     Active Substance: EZETIMIBE\SIMVASTATIN
     Indication: BLOOD CHOLESTEROL INCREASED
     Dosage: UNK
  3. BENTYL [Concomitant]
     Active Substance: DICYCLOMINE HYDROCHLORIDE
     Indication: IRRITABLE BOWEL SYNDROME
     Dosage: UNK
  4. PREMARIN [Suspect]
     Active Substance: ESTROGENS, CONJUGATED
     Indication: VULVOVAGINAL DRYNESS
     Dosage: 0.5 MG, 3X/WEEK
     Route: 067
     Dates: start: 2008, end: 201202

REACTIONS (8)
  - Meniscus injury [Unknown]
  - Drug dose omission [Unknown]
  - Memory impairment [Unknown]
  - Fatigue [Unknown]
  - Anxiety [Unknown]
  - Vulvovaginal dryness [Unknown]
  - Product quality issue [Unknown]
  - Back disorder [Unknown]

NARRATIVE: CASE EVENT DATE: 201202
